FAERS Safety Report 9275956 (Version 1)
Quarter: 2013Q2

REPORT INFORMATION
  Report Type: Spontaneous
  Country: US (occurrence: None)
  Receive Date: 20130502
  Receipt Date: 20130502
  Transmission Date: 20140414
  Serious: Yes (Other)
  Sender: FDA-Public Use
  Company Number: None

PATIENT
  Age: 50 Year
  Sex: Female

DRUGS (1)
  1. DECADRON [Suspect]
     Indication: RHEUMATOID ARTHRITIS
     Dosage: DOES 1M1 FREQUENCE 1
     Route: 030
     Dates: start: 20100324, end: 20100324

REACTIONS (4)
  - Septic shock [None]
  - Pneumonia [None]
  - Lung disorder [None]
  - Renal disorder [None]
